FAERS Safety Report 5429201-0 (Version None)
Quarter: 2007Q3

REPORT INFORMATION
  Report Type: 
  Country: None (occurrence: None)
  Receive Date: 20070827
  Receipt Date: 20070827
  Transmission Date: 20080115
  Serious: Yes (Death)
  Sender: FDA-Public Use
  Company Number: None

PATIENT
  Age: 49 Year
  Sex: Male
  Weight: 86.1834 kg

DRUGS (2)
  1. BUSPAR [Suspect]
     Indication: ANXIETY
     Dosage: 10 MG  3 TIMES A DAY  PO
     Route: 048
     Dates: start: 20070302, end: 20070304
  2. BUSPAR [Suspect]
     Indication: DEPRESSION
     Dosage: 10 MG  3 TIMES A DAY  PO
     Route: 048
     Dates: start: 20070302, end: 20070304

REACTIONS (1)
  - COMPLETED SUICIDE [None]
